FAERS Safety Report 11657252 (Version 2)
Quarter: 2015Q4

REPORT INFORMATION
  Report Type: Report from Study
  Country: US (occurrence: US)
  Receive Date: 20151023
  Receipt Date: 20151028
  Transmission Date: 20160304
  Serious: No
  Sender: FDA-Public Use
  Company Number: US-ABBVIE-15P-163-1470595-00

PATIENT
  Age: 26 Year
  Sex: Female

DRUGS (2)
  1. SEASONIQUE [Concomitant]
     Active Substance: ETHINYL ESTRADIOL\LEVONORGESTREL
     Indication: PRODUCT USED FOR UNKNOWN INDICATION
  2. LUPRON DEPOT [Suspect]
     Active Substance: LEUPROLIDE ACETATE
     Indication: ENDOMETRIOSIS
     Route: 065
     Dates: start: 201401, end: 201407

REACTIONS (3)
  - Hair texture abnormal [Unknown]
  - Dry skin [Unknown]
  - Hot flush [Unknown]

NARRATIVE: CASE EVENT DATE: 201401
